FAERS Safety Report 20088664 (Version 2)
Quarter: 2022Q1

REPORT INFORMATION
  Report Type: Report from Study
  Country: US (occurrence: US)
  Receive Date: 20211119
  Receipt Date: 20220211
  Transmission Date: 20220424
  Serious: Yes (Other)
  Sender: FDA-Public Use
  Company Number: US-BIOVITRUM-2021US8651

PATIENT
  Age: 88 Year
  Sex: Female

DRUGS (3)
  1. KINERET [Suspect]
     Active Substance: ANAKINRA
     Indication: Rheumatoid arthritis
     Route: 058
     Dates: start: 20190422
  2. KINERET [Suspect]
     Active Substance: ANAKINRA
     Indication: Gout
     Route: 058
     Dates: start: 20190418
  3. KINERET [Suspect]
     Active Substance: ANAKINRA
     Indication: Osteoarthritis

REACTIONS (7)
  - Atrial fibrillation [Unknown]
  - Hallucination [Unknown]
  - Adverse drug reaction [Unknown]
  - Folliculitis [Unknown]
  - Therapy interrupted [Unknown]
  - Confusional state [Unknown]
  - Off label use [Unknown]

NARRATIVE: CASE EVENT DATE: 20190422
